FAERS Safety Report 5524736-4 (Version None)
Quarter: 2007Q4

REPORT INFORMATION
  Report Type: 
  Country: None (occurrence: None)
  Receive Date: 20071123
  Receipt Date: 20071119
  Transmission Date: 20080405
  Serious: Yes (Other)
  Sender: FDA-Public Use
  Company Number: PHBS2007JP19466

PATIENT
  Sex: Male

DRUGS (3)
  1. ADRENAL CORTICAL EXTRACT [Concomitant]
  2. GONADORELIN DIACETATE [Concomitant]
  3. ZOMETA [Suspect]
     Indication: PROSTATE CANCER
     Dosage: 4 MG, UNK
     Route: 042
     Dates: start: 20070401, end: 20071001

REACTIONS (3)
  - OSTEONECROSIS [None]
  - PROSTATIC SPECIFIC ANTIGEN INCREASED [None]
  - TOOTH LOSS [None]
